FAERS Safety Report 17171829 (Version 2)
Quarter: 2020Q3

REPORT INFORMATION
  Report Type: Spontaneous
  Country: US (occurrence: US)
  Receive Date: 20191218
  Receipt Date: 20200806
  Transmission Date: 20201102
  Serious: Yes (Other)
  Sender: FDA-Public Use
  Company Number: US-SA-2019SA347922

PATIENT

DRUGS (8)
  1. TAXOL [Concomitant]
     Active Substance: PACLITAXEL
     Dosage: UNK
     Route: 065
  2. TAXOTERE [Suspect]
     Active Substance: DOCETAXEL
     Indication: BREAST CANCER FEMALE
     Dosage: UNK UNK, Q3W
     Dates: start: 20070830, end: 20070830
  3. TAXOTERE [Suspect]
     Active Substance: DOCETAXEL
     Dosage: UNK UNK, Q3W
     Dates: start: 20070919, end: 20070919
  4. LIPITOR [Concomitant]
     Active Substance: ATORVASTATIN CALCIUM
  5. LASIX [Concomitant]
     Active Substance: FUROSEMIDE
  6. ADRIAMYCIN [Concomitant]
     Active Substance: DOXORUBICIN HYDROCHLORIDE
     Dosage: UNK
     Route: 065
  7. CYTOXAN [Concomitant]
     Active Substance: CYCLOPHOSPHAMIDE
  8. ALTACE [Concomitant]
     Active Substance: RAMIPRIL

REACTIONS (6)
  - Psychological trauma [Unknown]
  - Anxiety [Unknown]
  - Emotional distress [Unknown]
  - Pain [Unknown]
  - Impaired quality of life [Unknown]
  - Alopecia [Recovering/Resolving]

NARRATIVE: CASE EVENT DATE: 200803
